FAERS Safety Report 18798420 (Version 1)
Quarter: 2021Q1

REPORT INFORMATION
  Report Type: Report from Study
  Country: JP (occurrence: JP)
  Receive Date: 20210128
  Receipt Date: 20210128
  Transmission Date: 20210419
  Serious: Yes (Hospitalization, Other)
  Sender: FDA-Public Use
  Company Number: JP-AMGEN INC.-JPNCT2021012374

PATIENT
  Age: 79 Year
  Sex: Male
  Weight: 53.7 kg

DRUGS (6)
  1. LANSOPRAZOLE. [Concomitant]
     Active Substance: LANSOPRAZOLE
     Indication: PROPHYLAXIS AGAINST GASTROINTESTINAL ULCER
     Dosage: 15 MILLIGRAM, QD
     Route: 065
     Dates: start: 20210104
  2. DECADRON [Concomitant]
     Active Substance: DEXAMETHASONE
     Indication: PROPHYLAXIS OF NAUSEA AND VOMITING
     Dosage: 4 MILLIGRAM, QD
     Route: 065
     Dates: start: 20210105, end: 20210106
  3. PANITUMUMAB [Suspect]
     Active Substance: PANITUMUMAB
     Indication: COLON CANCER
     Dosage: 342 MILLIGRAM/KILOGRAM, Q2WK
     Route: 065
     Dates: start: 20201130
  4. IRINOTECAN [Suspect]
     Active Substance: IRINOTECAN
     Indication: COLON CANCER
     Dosage: 249 MILLIGRAM/KILOGRAM, Q2WEEKS
     Route: 065
     Dates: start: 20201130, end: 20201221
  5. IRINOTECAN [Suspect]
     Active Substance: IRINOTECAN
     Dosage: 200 MILLIGRAM/KILOGRAM, Q2WK
     Route: 065
     Dates: start: 20210104
  6. AMLODIPINE [AMLODIPINE BESILATE] [Concomitant]
     Active Substance: AMLODIPINE BESYLATE
     Indication: HYPERTENSION
     Dosage: 2.5 MILLIGRAM, QD
     Route: 065
     Dates: start: 20210104, end: 20210108

REACTIONS (6)
  - Leukopenia [Recovering/Resolving]
  - Malaise [Recovering/Resolving]
  - Weight decreased [Unknown]
  - Febrile neutropenia [Recovering/Resolving]
  - Dehydration [Recovering/Resolving]
  - Decreased appetite [Recovering/Resolving]

NARRATIVE: CASE EVENT DATE: 20210104
